FAERS Safety Report 5226042-4 (Version None)
Quarter: 2007Q1

REPORT INFORMATION
  Report Type: 
  Country: None (occurrence: None)
  Receive Date: 20070129
  Receipt Date: 20070117
  Transmission Date: 20070707
  Serious: Yes (Death, Hospitalization)
  Sender: FDA-Public Use
  Company Number: 2007BI001339

PATIENT
  Age: 38 Year
  Sex: Female

DRUGS (3)
  1. NATALIZUMAB [Suspect]
     Indication: MULTIPLE SCLEROSIS
     Dosage: 300 MG;QM;IV
     Route: 042
     Dates: start: 20061214, end: 20061214
  2. METHADONE HCL [Concomitant]
  3. XANAX [Concomitant]

REACTIONS (2)
  - COMPLETED SUICIDE [None]
  - PAIN [None]
